FAERS Safety Report 4767642-5 (Version None)
Quarter: 2005Q3

REPORT INFORMATION
  Report Type: 
  Country: None (occurrence: None)
  Receive Date: 20050912
  Receipt Date: 20050823
  Transmission Date: 20060218
  Serious: Yes (Hospitalization)
  Sender: FDA-Public Use
  Company Number: PAR_0186_2005

PATIENT
  Age: 51 Year
  Sex: Female

DRUGS (5)
  1. IBUPROFEN [Suspect]
     Indication: PAIN
     Dosage: 200 MG QID PO
     Route: 048
     Dates: start: 20050629, end: 20050710
  2. APRANAX [Suspect]
     Indication: PAIN
     Dosage: DF PO
     Route: 048
     Dates: start: 20050630, end: 20050707
  3. BAUME AROMA [Suspect]
     Indication: PAIN
     Dosage: DF
     Dates: start: 20050630, end: 20050707
  4. BIOCALYPTOL-PHOLCODINE [Suspect]
     Indication: THROAT IRRITATION
     Dosage: DF PO
     Route: 048
     Dates: start: 20050629, end: 20050705
  5. ZALDIAR [Suspect]
     Indication: PAIN
     Dosage: DF PO
     Route: 048
     Dates: start: 20050630, end: 20050707

REACTIONS (2)
  - RASH MACULO-PAPULAR [None]
  - VASCULAR PURPURA [None]
